FAERS Safety Report 6931315-0 (Version None)
Quarter: 2010Q3

REPORT INFORMATION
  Report Type: 
  Country: None (occurrence: None)
  Receive Date: 20100816
  Receipt Date: 20100809
  Transmission Date: 20110219
  Serious: Yes (Disabling)
  Sender: FDA-Public Use
  Company Number: OMPQ-NO-1008S-0721

PATIENT
  Age: 59 Year
  Sex: Male

DRUGS (12)
  1. OMNIPAQUE 140 [Suspect]
     Indication: PRODUCT USED FOR UNKNOWN INDICATION
     Dosage: 145 ML, SINGLE DOSE
     Dates: start: 20100715, end: 20100715
  2. PREDNISOLONE [Concomitant]
  3. MARZULENE S [Concomitant]
  4. AZULFIDINE [Concomitant]
  5. DICLOFENAC [Concomitant]
  6. OMEPRAZOLE [Concomitant]
  7. ALFACALCIDOL [Concomitant]
  8. LIVALO [Concomitant]
  9. METHOTREXATE [Concomitant]
  10. FOLIAMIN [Concomitant]
  11. ENBREL [Concomitant]
  12. LEVOFLOXACIN [Concomitant]

REACTIONS (1)
  - RETROGRADE AMNESIA [None]
